FAERS Safety Report 7399300-5 (Version None)
Quarter: 2011Q2

REPORT INFORMATION
  Report Type: 
  Country: None (occurrence: None)
  Receive Date: 20110407
  Receipt Date: 20110405
  Transmission Date: 20111010
  Serious: Yes (Death)
  Sender: FDA-Public Use
  Company Number: JP-SANOFI-AVENTIS-2011SA020530

PATIENT
  Age: 60 Year
  Sex: Male
  Weight: 72.5 kg

DRUGS (7)
  1. ARTIST [Concomitant]
     Route: 048
  2. LANDSEN [Concomitant]
     Route: 048
  3. PLAVIX [Suspect]
     Route: 048
     Dates: start: 20100210, end: 20100404
  4. ASPIRIN [Suspect]
     Indication: ACUTE CORONARY SYNDROME
     Route: 048
  5. ROSUVASTATIN CALCIUM [Concomitant]
     Route: 048
  6. PLAVIX [Suspect]
     Indication: ACUTE CORONARY SYNDROME
     Route: 048
     Dates: start: 20100209, end: 20100209
  7. RENIVACE [Concomitant]
     Route: 048

REACTIONS (1)
  - SUDDEN CARDIAC DEATH [None]
